FAERS Safety Report 7470682-9 (Version None)
Quarter: 2011Q2

REPORT INFORMATION
  Report Type: 
  Country: None (occurrence: None)
  Receive Date: 20110510
  Receipt Date: 20110405
  Transmission Date: 20111010
  Serious: No
  Sender: FDA-Public Use
  Company Number: US-BAYER-2011-030479

PATIENT
  Sex: Female
  Weight: 86 kg

DRUGS (10)
  1. ALEVE (CAPLET) [Suspect]
     Indication: BACK PAIN
     Dosage: UNK
     Route: 048
  2. METFORMIN HCL [Concomitant]
  3. SYNTHROID [Concomitant]
  4. CRESTOR [Concomitant]
  5. ASPIRIN [Concomitant]
  6. FLAX SEED OIL [Concomitant]
  7. BENICAR [Concomitant]
  8. ALLOPURINOL [Concomitant]
  9. VITAMIN D [Concomitant]
  10. ACTOS [Concomitant]

REACTIONS (1)
  - NO ADVERSE EVENT [None]
